APPROVED DRUG PRODUCT: JESDUVROQ
Active Ingredient: DAPRODUSTAT
Strength: 8MG
Dosage Form/Route: TABLET;ORAL
Application: N216951 | Product #005
Applicant: GLAXOSMITHKLINE INTELLECTUAL PROPERTY NO 2 LTD ENGLAND
Approved: Feb 1, 2023 | RLD: Yes | RS: No | Type: DISCN

PATENTS:
Patent 11117871 | Expires: Mar 13, 2038
Patent 8815884 | Expires: Jun 22, 2027
Patent 8557834 | Expires: Jun 22, 2027
Patent 11649217 | Expires: Mar 13, 2038
Patent 11643397 | Expires: Jun 22, 2027
Patent 8324208 | Expires: Dec 11, 2028

EXCLUSIVITY:
Code: NCE | Date: Feb 1, 2028